FAERS Safety Report 4357052-7 (Version None)
Quarter: 2004Q2

REPORT INFORMATION
  Report Type: 
  Country: None (occurrence: None)
  Receive Date: 20040512
  Receipt Date: 20040429
  Transmission Date: 20050107
  Serious: Yes (Death, Hospitalization)
  Sender: FDA-Public Use
  Company Number: NL-GLAXOSMITHKLINE-B0331734A

PATIENT
  Age: 46 Year
  Sex: Female

DRUGS (7)
  1. PAROXETINE HCL [Suspect]
     Indication: DEPRESSION
     Route: 048
     Dates: start: 20021224, end: 20030901
  2. NIFEDIPINUM [Concomitant]
     Dosage: 20MG TWICE PER DAY
     Route: 048
  3. TRINORDIOL [Concomitant]
     Route: 048
  4. OXAZEPAM [Concomitant]
     Route: 048
     Dates: start: 20030221, end: 20030808
  5. DICLOFENAC SODIUM [Concomitant]
     Dosage: 100MG TWICE PER DAY
     Dates: start: 20030912, end: 20030916
  6. ACETAMINOPHEN [Concomitant]
     Dates: start: 20030912, end: 20030917
  7. OMEPRAZOLE [Concomitant]
     Dosage: 1CAP PER DAY
     Dates: start: 20030912, end: 20030922

REACTIONS (2)
  - DEATH [None]
  - PANCREATITIS [None]
